FAERS Safety Report 5863274-6 (Version None)
Quarter: 2008Q3

REPORT INFORMATION
  Report Type: 
  Country: None (occurrence: None)
  Receive Date: 20080828
  Receipt Date: 20080818
  Transmission Date: 20090109
  Serious: Yes (Hospitalization)
  Sender: FDA-Public Use
  Company Number: EC-ALLERGAN-0810619US

PATIENT
  Sex: Female

DRUGS (1)
  1. EPINASTINE HCL;PSEUDOEFEDRINE TAB [Suspect]
     Indication: RHINITIS
     Dosage: UNK, Q12H
     Route: 048
     Dates: start: 20080601, end: 20080601

REACTIONS (1)
  - HYPERTENSION [None]
